FAERS Safety Report 16335441 (Version 3)
Quarter: 2020Q2

REPORT INFORMATION
  Report Type: Spontaneous
  Country: PT (occurrence: PT)
  Receive Date: 20190521
  Receipt Date: 20200626
  Transmission Date: 20200713
  Serious: Yes (Death, Life-Threatening, Other)
  Sender: FDA-Public Use
  Company Number: PT-ACCORD-128202

PATIENT
  Age: 56 Year
  Sex: Male
  Weight: 85 kg

DRUGS (4)
  1. FLUOROURACIL. [Suspect]
     Active Substance: FLUOROURACIL
     Indication: ADENOCARCINOMA OF COLON
     Dosage: BY INFUSION PUMP IN 48 HOURS, EVERY 2 WEEKS
     Route: 042
     Dates: start: 20180626, end: 20180823
  2. OXALIPLATIN. [Suspect]
     Active Substance: OXALIPLATIN
     Indication: ADENOCARCINOMA OF COLON
     Dosage: EVERY-2 WEEKS
     Route: 042
     Dates: start: 20180626, end: 20180821
  3. BEVACIZUMAB. [Suspect]
     Active Substance: BEVACIZUMAB
     Indication: ADENOCARCINOMA OF COLON
     Dosage: EVERY-2 WEEKS
     Route: 042
     Dates: start: 20180626, end: 20180821
  4. FOLINIC ACID [Concomitant]
     Active Substance: LEUCOVORIN
     Indication: ADENOCARCINOMA OF COLON
     Dosage: EVERY-2 WEEKS
     Route: 042
     Dates: start: 20180626, end: 20180821

REACTIONS (3)
  - Device dislocation [Fatal]
  - Vomiting [Fatal]
  - Myelopathy [Fatal]

NARRATIVE: CASE EVENT DATE: 2018
